FAERS Safety Report 16975897 (Version 2)
Quarter: 2019Q4

REPORT INFORMATION
  Report Type: Report from Study
  Country: US (occurrence: US)
  Receive Date: 20191030
  Receipt Date: 20191111
  Transmission Date: 20200122
  Serious: Yes (Death, Hospitalization)
  Sender: FDA-Public Use
  Company Number: US-ACTELION-A-NJ2019-197514

PATIENT
  Age: 91 Year
  Sex: Male

DRUGS (2)
  1. OPSUMIT [Suspect]
     Active Substance: MACITENTAN
     Indication: PULMONARY OEDEMA
     Dosage: 10 MG, BID
     Route: 048
     Dates: start: 20191015, end: 20191016
  2. SILDENAFIL. [Concomitant]
     Active Substance: SILDENAFIL

REACTIONS (2)
  - Product prescribing issue [Unknown]
  - Death [Fatal]

NARRATIVE: CASE EVENT DATE: 20191015
